FAERS Safety Report 16449888 (Version 1)
Quarter: 2019Q2

REPORT INFORMATION
  Report Type: Spontaneous
  Country: US (occurrence: US)
  Receive Date: 20190619
  Receipt Date: 20190619
  Transmission Date: 20190711
  Serious: No
  Sender: FDA-Public Use
  Company Number: US-ROCHE-2117679

PATIENT
  Sex: Female

DRUGS (11)
  1. METHOTREXATE. [Concomitant]
     Active Substance: METHOTREXATE
     Route: 048
  2. PLAQUENIL [Concomitant]
     Active Substance: HYDROXYCHLOROQUINE SULFATE
  3. HUMIRA [Concomitant]
     Active Substance: ADALIMUMAB
  4. ACTEMRA [Suspect]
     Active Substance: TOCILIZUMAB
     Indication: RHEUMATOID ARTHRITIS
     Route: 065
  5. IMURAN [Concomitant]
     Active Substance: AZATHIOPRINE
  6. ARAVA [Concomitant]
     Active Substance: LEFLUNOMIDE
  7. REMICADE [Concomitant]
     Active Substance: INFLIXIMAB
  8. CODEINE [Concomitant]
     Active Substance: CODEINE
  9. METHOTREXATE. [Concomitant]
     Active Substance: METHOTREXATE
     Route: 065
  10. SULFASALAZINE. [Concomitant]
     Active Substance: SULFASALAZINE
  11. MORPHINE [Concomitant]
     Active Substance: MORPHINE

REACTIONS (1)
  - Therapeutic response decreased [Unknown]
